FAERS Safety Report 11622277 (Version 1)
Quarter: 2015Q4

REPORT INFORMATION
  Report Type: Spontaneous
  Country: US (occurrence: US)
  Receive Date: 20151013
  Receipt Date: 20151013
  Transmission Date: 20160304
  Serious: No
  Sender: FDA-Public Use
  Company Number: US-JNJFOC-20151002627

PATIENT
  Age: 53 Year
  Sex: Female
  Weight: 136.08 kg

DRUGS (2)
  1. CHILDRENS MOTRIN [Suspect]
     Active Substance: IBUPROFEN
     Indication: ARTHRITIS
     Dosage: TOOK IBUPROFEN USING THE DOSING CUP PROVIDED. FILLED UP THE DOSING CUP TWICE PER DOSE, AS NEEDED.
     Route: 048
  2. CHILDRENS MOTRIN [Suspect]
     Active Substance: IBUPROFEN
     Indication: PROCEDURAL PAIN
     Dosage: TOOK IBUPROFEN USING THE DOSING CUP PROVIDED. FILLED UP THE DOSING CUP TWICE PER DOSE, AS NEEDED.
     Route: 048

REACTIONS (2)
  - Product use issue [Unknown]
  - Drug prescribing error [Unknown]
